FAERS Safety Report 19003440 (Version 2)
Quarter: 2021Q1

REPORT INFORMATION
  Report Type: Spontaneous
  Country: DE (occurrence: DE)
  Receive Date: 20210312
  Receipt Date: 20210322
  Transmission Date: 20210420
  Serious: Yes (Other)
  Sender: FDA-Public Use
  Company Number: DE-TORRENT-00019785

PATIENT
  Age: 3 Month
  Weight: 3 kg

DRUGS (2)
  1. PAROXETIN [Suspect]
     Active Substance: PAROXETINE HYDROCHLORIDE
     Indication: PRODUCT USED FOR UNKNOWN INDICATION
     Route: 064
  2. OLANZAPINE. [Suspect]
     Active Substance: OLANZAPINE
     Indication: PRODUCT USED FOR UNKNOWN INDICATION
     Route: 064

REACTIONS (3)
  - Foetal exposure during pregnancy [Not Recovered/Not Resolved]
  - Single functional kidney [Not Recovered/Not Resolved]
  - Small for dates baby [Not Recovered/Not Resolved]

NARRATIVE: CASE EVENT DATE: 2016
